FAERS Safety Report 10467641 (Version 2)
Quarter: 2014Q4

REPORT INFORMATION
  Report Type: Spontaneous
  Country: US (occurrence: US)
  Receive Date: 20140922
  Receipt Date: 20141022
  Transmission Date: 20150528
  Serious: Yes (Hospitalization)
  Sender: FDA-Public Use
  Company Number: US-GLAXOSMITHKLINE-A1090068A

PATIENT
  Age: 81 Year
  Sex: Male
  Weight: 86.4 kg

DRUGS (40)
  1. ELIGARD [Concomitant]
     Active Substance: LEUPROLIDE ACETATE
  2. MOMETASONE [Concomitant]
     Active Substance: MOMETASONE
  3. MULTIVITAMINS [Concomitant]
     Active Substance: VITAMINS
  4. BETACAROTENE [Concomitant]
     Active Substance: .BETA.-CAROTENE
  5. CHLORINE [Concomitant]
     Active Substance: CHLORINE
  6. FERROUS FUMARATE [Concomitant]
     Active Substance: FERROUS FUMARATE
  7. MANGANESE SULFATE. [Concomitant]
     Active Substance: MANGANESE SULFATE
  8. NICOTINAMIDE [Concomitant]
     Active Substance: NIACINAMIDE
  9. PANTOTHENIC ACID [Concomitant]
     Active Substance: PANTOTHENIC ACID
  10. THIAMINE [Concomitant]
     Active Substance: THIAMINE
  11. CALCIUM CARBONATE. [Concomitant]
     Active Substance: CALCIUM CARBONATE
  12. VANADIUM. [Concomitant]
     Active Substance: VANADIUM
  13. OMEGA 3 FISH OIL [Concomitant]
     Active Substance: FISH OIL\OMEGA-3 FATTY ACIDS
  14. FOLIC ACID. [Concomitant]
     Active Substance: FOLIC ACID
  15. RIBOFLAVIN [Concomitant]
     Active Substance: RIBOFLAVIN
  16. UNKNOWN [Concomitant]
     Active Substance: UNSPECIFIED INGREDIENT
  17. HYDROCHLOROTHIAZIDE + TRIAMTERENE [Suspect]
     Active Substance: HYDROCHLOROTHIAZIDE\TRIAMTERENE
     Indication: HYPERTENSION
     Dosage: UNK, U
     Dates: end: 20140904
  18. MINERALS [Concomitant]
     Active Substance: MINERALS
  19. ASCORBIC ACID. [Concomitant]
     Active Substance: ASCORBIC ACID
  20. BIOTIN [Concomitant]
     Active Substance: BIOTIN
  21. MAGNESIUM OXIDE. [Concomitant]
     Active Substance: MAGNESIUM OXIDE
  22. NICKEL SULFATE [Concomitant]
  23. TOCOPHEROL [Concomitant]
     Active Substance: TOCOPHEROL
  24. VITAMIN B12 [Concomitant]
     Active Substance: CYANOCOBALAMIN
  25. ZINC OXIDE. [Concomitant]
     Active Substance: ZINC OXIDE
  26. PHYTOSTEROL [Concomitant]
  27. GARLIC. [Concomitant]
     Active Substance: GARLIC
  28. BICALUTAMIDE. [Suspect]
     Active Substance: BICALUTAMIDE
     Indication: PRODUCT USED FOR UNKNOWN INDICATION
     Dosage: UNKNOWN
     Route: 065
  29. FORMOTEROL [Concomitant]
     Active Substance: FORMOTEROL
  30. IODINE [Concomitant]
     Active Substance: IODINE
  31. PROVENGE [Suspect]
     Active Substance: SIPULEUCEL-T
     Indication: PROSTATE CANCER METASTATIC
     Dosage: SINGLE DOSE 250ML
     Route: 042
     Dates: start: 20140822, end: 20140822
  32. COLECALCIFEROL [Concomitant]
     Active Substance: CHOLECALCIFEROL
  33. MOLYBDENUM [Concomitant]
     Active Substance: MOLYBDENUM
  34. SELENIUM [Concomitant]
     Active Substance: SELENIUM
  35. OXYBUTYNIN [Concomitant]
     Active Substance: OXYBUTYNIN
  36. PHOSPHORUS [Concomitant]
     Active Substance: PHOSPHORUS
  37. POTASSIUM CHLORIDE. [Concomitant]
     Active Substance: POTASSIUM CHLORIDE
  38. PYRIDOXINE HYDROCHLORIDE. [Concomitant]
     Active Substance: PYRIDOXINE HYDROCHLORIDE
  39. RETINOL ACETATE [Concomitant]
  40. NIACIN. [Concomitant]
     Active Substance: NIACIN

REACTIONS (6)
  - Dizziness [Unknown]
  - Dehydration [Recovered/Resolved]
  - Hyperkalaemia [Recovered/Resolved]
  - Oedema peripheral [Recovered/Resolved]
  - Hypertension [Recovered/Resolved]
  - Tachycardia [Recovered/Resolved]

NARRATIVE: CASE EVENT DATE: 20140904
